FAERS Safety Report 9891226 (Version 1)
Quarter: 2014Q1

REPORT INFORMATION
  Report Type: Spontaneous
  Country: US (occurrence: US)
  Receive Date: 20140212
  Receipt Date: 20140212
  Transmission Date: 20141002
  Serious: Yes (Hospitalization, Other)
  Sender: FDA-Public Use
  Company Number: US-AMGEN-USASP2014008754

PATIENT
  Sex: Female

DRUGS (4)
  1. PROLIA [Suspect]
     Indication: OSTEOPENIA
     Dosage: UNK
     Route: 065
     Dates: start: 201311
  2. SENSIPAR [Concomitant]
  3. COUMADIN                           /00014802/ [Concomitant]
  4. LOVENOX [Concomitant]

REACTIONS (2)
  - Blood calcium decreased [Unknown]
  - Blood parathyroid hormone increased [Unknown]
